FAERS Safety Report 22225378 (Version 4)
Quarter: 2024Q1

REPORT INFORMATION
  Report Type: Spontaneous
  Country: US (occurrence: US)
  Receive Date: 20230418
  Receipt Date: 20240125
  Transmission Date: 20240409
  Serious: Yes (Other)
  Sender: FDA-Public Use
  Company Number: US-Blueprint Medicines Corporation-SP-US-2023-000648

PATIENT
  Age: 65 Year
  Sex: Female

DRUGS (2)
  1. AYVAKIT [Suspect]
     Active Substance: AVAPRITINIB
     Indication: Systemic mastocytosis
     Route: 048
     Dates: start: 20211118
  2. AYVAKIT [Suspect]
     Active Substance: AVAPRITINIB
     Indication: Advanced systemic mastocytosis
     Route: 048
     Dates: start: 20211118

REACTIONS (6)
  - Anaphylactic reaction [Unknown]
  - Fatigue [Recovering/Resolving]
  - Brain fog [Unknown]
  - Flushing [Unknown]
  - Dizziness [Unknown]
  - Hair disorder [Unknown]

NARRATIVE: CASE EVENT DATE: 20230404
